FAERS Safety Report 5261574-4 (Version None)
Quarter: 2007Q1

REPORT INFORMATION
  Report Type: 
  Country: None (occurrence: None)
  Receive Date: 20070307
  Receipt Date: 20070222
  Transmission Date: 20070707
  Serious: Yes (Death)
  Sender: FDA-Public Use
  Company Number: 2007JP000827

PATIENT

DRUGS (2)
  1. PROGRAF [Suspect]
     Indication: STEM CELL TRANSPLANT
     Dosage: 0.02 MG/KG, CONTINUOUS, IV DRIP
     Route: 041
  2. METHOTREXATE [Concomitant]

REACTIONS (2)
  - HEPATIC VEIN OCCLUSION [None]
  - VENOOCCLUSIVE LIVER DISEASE [None]
